FAERS Safety Report 8355806-3 (Version None)
Quarter: 2012Q2

REPORT INFORMATION
  Report Type: 
  Country: None (occurrence: None)
  Receive Date: 20120514
  Receipt Date: 20120510
  Transmission Date: 20120825
  Serious: No
  Sender: FDA-Public Use
  Company Number: US-PFIZER INC-2012114945

PATIENT
  Sex: Female
  Weight: 63.492 kg

DRUGS (1)
  1. GABAPENTIN [Suspect]
     Indication: MUSCULAR WEAKNESS
     Dosage: 300 MG, 3X/DAY
     Route: 048
     Dates: start: 20120501

REACTIONS (2)
  - PARAESTHESIA [None]
  - TREMOR [None]
